FAERS Safety Report 9889751 (Version 1)
Quarter: 2014Q1

REPORT INFORMATION
  Report Type: Spontaneous
  Country: US (occurrence: US)
  Receive Date: 20140211
  Receipt Date: 20140211
  Transmission Date: 20141002
  Serious: Yes (Other)
  Sender: FDA-Public Use
  Company Number: CHPA2014US002462

PATIENT
  Age: 43 Year
  Sex: Female

DRUGS (1)
  1. GAS-X [Suspect]
     Dosage: UNK
     Route: 048
     Dates: start: 20140206

REACTIONS (2)
  - Blood glucose increased [Unknown]
  - Condition aggravated [Unknown]
